FAERS Safety Report 17392525 (Version 3)
Quarter: 2020Q2

REPORT INFORMATION
  Report Type: Spontaneous
  Country: US (occurrence: US)
  Receive Date: 20200207
  Receipt Date: 20200603
  Transmission Date: 20200713
  Serious: No
  Sender: FDA-Public Use
  Company Number: US-JNJFOC-20200204952

PATIENT
  Age: 74 Year
  Sex: Male
  Weight: 60.84 kg

DRUGS (1)
  1. ZYTIGA [Suspect]
     Active Substance: ABIRATERONE ACETATE
     Indication: PROSTATE CANCER METASTATIC
     Route: 048
     Dates: start: 20170921

REACTIONS (5)
  - Cough [Unknown]
  - Hot flush [Not Recovered/Not Resolved]
  - Weight decreased [Recovering/Resolving]
  - Rash [Not Recovered/Not Resolved]
  - Nasopharyngitis [Unknown]

NARRATIVE: CASE EVENT DATE: 20180315
